FAERS Safety Report 6020155-5 (Version None)
Quarter: 2008Q4

REPORT INFORMATION
  Report Type: 
  Country: None (occurrence: None)
  Receive Date: 20081223
  Receipt Date: 20081223
  Transmission Date: 20090506
  Serious: Yes (Other)
  Sender: FDA-Public Use
  Company Number: None

PATIENT
  Sex: Female
  Weight: 68.0396 kg

DRUGS (1)
  1. LAMOTRIGINE [Suspect]
     Indication: CONVULSION
     Dosage: TAKE 100MG BY MOUTH TWICE DAILY
     Route: 048
     Dates: start: 20081005, end: 20081102

REACTIONS (3)
  - AMENORRHOEA [None]
  - CONVULSION [None]
  - DYSMENORRHOEA [None]
